FAERS Safety Report 8105666-0 (Version None)
Quarter: 2012Q1

REPORT INFORMATION
  Report Type: 
  Country: None (occurrence: None)
  Receive Date: 20120201
  Receipt Date: 20120124
  Transmission Date: 20120608
  Serious: Yes (Hospitalization)
  Sender: FDA-Public Use
  Company Number: JP-CELGENEUS-087-21880-11040690

PATIENT
  Sex: Female

DRUGS (45)
  1. DEXAMETHASONE ACETATE [Suspect]
     Dosage: 40 MILLIGRAM
     Route: 048
     Dates: start: 20110531, end: 20110603
  2. DEXAMETHASONE ACETATE [Suspect]
     Dosage: 20 MILLIGRAM
     Route: 048
     Dates: start: 20110908, end: 20110911
  3. FAMOTIDINE [Concomitant]
     Indication: PROPHYLAXIS
     Dosage: 20 MILLIGRAM
     Route: 048
     Dates: start: 20071113, end: 20110308
  4. FAMOTIDINE [Concomitant]
     Dosage: 40 MILLIGRAM
     Route: 048
     Dates: start: 20110407, end: 20110928
  5. CEFAZOLIN SODIUM [Concomitant]
     Indication: PROPHYLAXIS
     Dosage: 3 GRAM
     Route: 048
     Dates: start: 20100702, end: 20110308
  6. PRIMPERAN TAB [Concomitant]
     Dosage: 15 MILLIGRAM
     Route: 048
     Dates: start: 20110407, end: 20110613
  7. REVLIMID [Suspect]
     Dosage: 25 MILLIGRAM
     Route: 048
     Dates: start: 20110225, end: 20110302
  8. DEXAMETHASONE ACETATE [Suspect]
     Dosage: 40 MILLIGRAM
     Route: 048
     Dates: start: 20110407, end: 20110410
  9. ZOVIRAX [Concomitant]
     Indication: PROPHYLAXIS
     Dosage: 200 MILLIGRAM
     Route: 048
     Dates: start: 20100616, end: 20110308
  10. ZOVIRAX [Concomitant]
     Dosage: 200 MILLIGRAM
     Route: 048
     Dates: start: 20110407, end: 20110928
  11. ASPIRIN [Concomitant]
     Dosage: 200 MILLIGRAM
     Route: 048
     Dates: start: 20110531, end: 20110928
  12. ISODINE GARGLE [Concomitant]
     Indication: PROPHYLAXIS
     Dosage: ADEQUATE DOSE
     Dates: start: 20071219, end: 20110308
  13. MUCOSTA [Concomitant]
     Dosage: 300 MILLIGRAM
     Route: 048
     Dates: start: 20110407, end: 20110928
  14. GLYCERIN [Concomitant]
     Dosage: 60 MILLILITER
     Dates: start: 20110523, end: 20110523
  15. ISODINE GARGLE [Concomitant]
     Dosage: ADEQUATE DOSE
     Dates: start: 20110407, end: 20110928
  16. MAGNESIUM OXIDE [Concomitant]
     Dosage: 2 GRAM
     Route: 048
     Dates: start: 20110407, end: 20110928
  17. PRIMPERAN TAB [Concomitant]
     Indication: PROPHYLAXIS
     Dosage: 15 MILLIGRAM
     Route: 048
     Dates: start: 20100806, end: 20110308
  18. DEXAMETHASONE ACETATE [Suspect]
     Dosage: 40 MILLIGRAM
     Route: 048
     Dates: start: 20110712, end: 20110715
  19. SULFAMETHOXAZOLE [Concomitant]
     Dosage: 1 GRAM
     Route: 048
     Dates: start: 20110727, end: 20110928
  20. MICONAZOLE [Concomitant]
     Indication: PROPHYLAXIS
     Dosage: ADEQUATE DOSE
     Dates: start: 20110502, end: 20110530
  21. REVLIMID [Suspect]
     Dosage: 25 MILLIGRAM
     Route: 048
     Dates: start: 20110712, end: 20110801
  22. DEXAMETHASONE ACETATE [Suspect]
     Dosage: 40 MILLIGRAM
     Route: 048
     Dates: start: 20110504, end: 20110507
  23. SULFAMETHOXAZOLE [Concomitant]
     Dosage: 1 GRAM
     Route: 048
     Dates: start: 20110407, end: 20110502
  24. ASPIRIN [Concomitant]
     Indication: PROPHYLAXIS
     Dosage: 100 MILLIGRAM
     Route: 048
     Dates: start: 20100710, end: 20110308
  25. MUCOSTA [Concomitant]
     Indication: PROPHYLAXIS
     Dosage: 300 MILLIGRAM
     Route: 048
     Dates: start: 20060319, end: 20110308
  26. OPALMON [Concomitant]
     Dosage: 15 MICROGRAM
     Route: 048
     Dates: start: 20070510, end: 20110308
  27. PRIMPERAN TAB [Concomitant]
     Dosage: 10 MILLIGRAM
     Route: 041
     Dates: start: 20110525, end: 20110525
  28. PURSENNID [Concomitant]
     Dosage: 24 MILLIGRAM
     Route: 048
     Dates: start: 20110525, end: 20110928
  29. REVLIMID [Suspect]
     Dosage: 25 MILLIGRAM
     Route: 048
     Dates: start: 20110912, end: 20110920
  30. ASPIRIN [Concomitant]
     Dosage: 100 MILLIGRAM
     Route: 048
     Dates: start: 20110407, end: 20110530
  31. MAGNESIUM OXIDE [Concomitant]
     Dosage: 1.89 GRAM
     Route: 048
     Dates: start: 20060531, end: 20110908
  32. MOTILIUM [Concomitant]
     Indication: PROPHYLAXIS
     Dosage: 30 MILLIGRAM
     Route: 048
     Dates: start: 20110711, end: 20110928
  33. REVLIMID [Suspect]
     Dosage: 25 MILLIGRAM
     Route: 048
     Dates: start: 20110628, end: 20110703
  34. DEXAMETHASONE ACETATE [Suspect]
     Indication: MULTIPLE MYELOMA
     Dosage: 40 MILLIGRAM
     Route: 048
     Dates: start: 20110210, end: 20110213
  35. SULFAMETHOXAZOLE [Concomitant]
     Indication: PROPHYLAXIS
     Dosage: 1 GRAM
     Route: 048
     Dates: start: 20071113, end: 20110308
  36. CEFAZOLIN SODIUM [Concomitant]
     Dosage: 3 GRAM
     Route: 048
     Dates: start: 20110407, end: 20110928
  37. MEROPENEM [Concomitant]
     Indication: PROPHYLAXIS
     Dosage: .5 GRAM
     Route: 041
     Dates: start: 20110607, end: 20110608
  38. REVLIMID [Suspect]
     Indication: MULTIPLE MYELOMA
     Dosage: 25 MILLIGRAM
     Route: 048
     Dates: start: 20110210, end: 20110223
  39. REVLIMID [Suspect]
     Dosage: 25 MILLIGRAM
     Route: 048
     Dates: start: 20110407, end: 20110427
  40. REVLIMID [Suspect]
     Dosage: 25 MILLIGRAM
     Route: 048
     Dates: start: 20110505, end: 20110520
  41. REVLIMID [Suspect]
     Dosage: 25 MILLIGRAM
     Route: 048
     Dates: start: 20110531, end: 20110613
  42. DEXAMETHASONE ACETATE [Suspect]
     Dosage: 40 MILLIGRAM
     Route: 048
     Dates: start: 20110218, end: 20110221
  43. OPALMON [Concomitant]
     Indication: PROPHYLAXIS
     Dosage: 15 MICROGRAM
     Route: 048
     Dates: start: 20110407, end: 20110928
  44. RISEDRONATE SODIUM [Concomitant]
     Dosage: 17.5 MILLIGRAM
     Route: 048
     Dates: start: 20110502, end: 20110928
  45. ASPARA POTASSIUM [Concomitant]
     Dosage: 900 MILLIGRAM
     Route: 048
     Dates: start: 20110605, end: 20110928

REACTIONS (3)
  - FATIGUE [None]
  - VISUAL ACUITY REDUCED [None]
  - INTERSTITIAL LUNG DISEASE [None]
